FAERS Safety Report 26060922 (Version 1)
Quarter: 2025Q4

REPORT INFORMATION
  Report Type: Spontaneous
  Country: EU (occurrence: EU)
  Receive Date: 20251118
  Receipt Date: 20251118
  Transmission Date: 20260119
  Serious: Yes (Death, Life-Threatening, Hospitalization, Disabling, Other)
  Sender: MERCK SHARP & DOHME LLC
  Company Number: None

PATIENT
  Age: 66 Year
  Sex: Female
  Weight: 90 kg

DRUGS (2)
  1. KEYTRUDA [Suspect]
     Active Substance: PEMBROLIZUMAB
     Indication: Breast cancer
     Dosage: THE PATIENT RECEIVED 2 INTRAVENOUS SERIES 3 WEEKS APART
     Route: 042
     Dates: start: 20250910, end: 20251002
  2. PACLITAXEL KABI 6MG/ML [Concomitant]
     Indication: Breast cancer
     Dosage: 1 ADMINISTRATION EVERY WEEK
     Route: 042
     Dates: start: 20250910, end: 20251002

REACTIONS (3)
  - Pneumonia [Fatal]
  - Cardiac arrest [Fatal]
  - Immune-mediated myocarditis [Fatal]

NARRATIVE: CASE EVENT DATE: 20251014
